FAERS Safety Report 16421736 (Version 5)
Quarter: 2020Q3

REPORT INFORMATION
  Report Type: Spontaneous
  Country: JP (occurrence: JP)
  Receive Date: 20190612
  Receipt Date: 20200709
  Transmission Date: 20201102
  Serious: Yes (Death, Hospitalization, Other)
  Sender: FDA-Public Use
  Company Number: JP-BAYER-2019-112254

PATIENT
  Age: 34 Year
  Sex: Female

DRUGS (15)
  1. CODEINE PHOSPHATE [CODEINE PHOSPHATE HEMIHYDRATE] [Concomitant]
     Dosage: UNK
     Dates: start: 20161209
  2. MIRENA [Suspect]
     Active Substance: LEVONORGESTREL
     Indication: MENORRHAGIA
     Dosage: 20 ?G PER DAY, CONTINUOUSLY
     Route: 015
     Dates: start: 20170728
  3. TRAMCET [Concomitant]
     Active Substance: ACETAMINOPHEN\TRAMADOL
     Dosage: DAILY DOSE 8DF
     Route: 048
  4. NEUROTROPIN [RABBIT VACCINIA EXTRACT] [Concomitant]
     Active Substance: ORYCTOLAGUS CUNICULUS SKIN
     Dosage: DAILY DOSE 2DF
     Route: 048
  5. ROHYPNOL [Concomitant]
     Active Substance: FLUNITRAZEPAM
     Dosage: UNK
     Dates: start: 20161209
  6. CYMBALTA [Concomitant]
     Active Substance: DULOXETINE HYDROCHLORIDE
     Dosage: 40 MG, QD
     Route: 048
     Dates: start: 20170107
  7. ONETRAM [Concomitant]
     Active Substance: TRAMADOL HYDROCHLORIDE
     Dosage: UNK
     Dates: start: 20161125
  8. MIRENA [Suspect]
     Active Substance: LEVONORGESTREL
     Indication: MENORRHAGIA
     Dosage: 20 ?G PER DAY, CONTINUOUSLY
     Route: 015
     Dates: start: 20160812, end: 20170728
  9. SEROQUEL [Concomitant]
     Active Substance: QUETIAPINE FUMARATE
     Dosage: 400 MG, QD
     Route: 048
  10. VEGETAMIN B [Concomitant]
     Active Substance: CHLORPROMAZINE HYDROCHLORIDE\PHENOBARBITAL\PROMETHAZINE
     Dosage: 1 DF, QD
     Route: 048
  11. LYRICA [Concomitant]
     Active Substance: PREGABALIN
     Dosage: DAILY DOSE 6DF
     Route: 048
     Dates: end: 201611
  12. DUROTEP [Concomitant]
     Active Substance: FENTANYL
     Dosage: EVERY 3DAYS
     Route: 003
     Dates: end: 201705
  13. CYMBALTA [Concomitant]
     Active Substance: DULOXETINE HYDROCHLORIDE
     Dosage: 40 MG, QD
     Route: 048
     Dates: end: 201611
  14. REFLEX [Concomitant]
     Active Substance: MIRTAZAPINE
     Dosage: 15 MG, QD
     Route: 048
  15. NEUROTROPIN [RABBIT VACCINIA EXTRACT] [Concomitant]
     Active Substance: ORYCTOLAGUS CUNICULUS SKIN
     Dosage: INJECTION

REACTIONS (13)
  - Pyelonephritis [Fatal]
  - Pyrexia [Fatal]
  - Foreign body in urogenital tract [None]
  - Metrorrhagia [None]
  - Cough [None]
  - Hyperthermia [Fatal]
  - Abdominal distension [None]
  - Ureteric injury [Fatal]
  - Device dislocation [None]
  - Device expulsion [None]
  - Pyelocaliectasis [Fatal]
  - Abdominal pain [None]
  - Epilepsy [Fatal]

NARRATIVE: CASE EVENT DATE: 20170629
